FAERS Safety Report 23470482 (Version 1)
Quarter: 2024Q1

REPORT INFORMATION
  Report Type: Spontaneous
  Country: FR (occurrence: FR)
  Receive Date: 20240202
  Receipt Date: 20240202
  Transmission Date: 20240410
  Serious: Yes (Hospitalization, Other)
  Sender: FDA-Public Use
  Company Number: FR-MEITHEAL-2024MPLIT00014

PATIENT
  Age: 54 Year
  Sex: Female

DRUGS (2)
  1. MITOMYCIN [Suspect]
     Active Substance: MITOMYCIN
     Indication: Anal cancer
     Dosage: RECEIVED TWO CYCLES OF CHEMOTHERAPY
     Route: 065
  2. FLUOROURACIL [Concomitant]
     Active Substance: FLUOROURACIL
     Indication: Anal cancer
     Dosage: RECEIVED TWO CYCLES OF CHEMOTHERAPY
     Route: 065

REACTIONS (1)
  - Pulmonary veno-occlusive disease [Recovered/Resolved]
